FAERS Safety Report 10571760 (Version 1)
Quarter: 2014Q4

REPORT INFORMATION
  Report Type: Spontaneous
  Country: US (occurrence: US)
  Receive Date: 20141107
  Receipt Date: 20141107
  Transmission Date: 20150529
  Serious: No
  Sender: FDA-Public Use
  Company Number: US-009507513-1411USA001355

PATIENT
  Age: 53 Year
  Sex: Male

DRUGS (2)
  1. ZOCOR [Suspect]
     Active Substance: SIMVASTATIN
     Dosage: 80 MG, UNK
     Route: 048
  2. DAPTOMYCIN. [Interacting]
     Active Substance: DAPTOMYCIN
     Indication: OSTEOMYELITIS
     Dosage: 650 MG/KG, UNK

REACTIONS (2)
  - Drug interaction [Unknown]
  - Myalgia [Unknown]
